FAERS Safety Report 25482588 (Version 1)
Quarter: 2025Q2

REPORT INFORMATION
  Report Type: Spontaneous
  Country: FR (occurrence: FR)
  Receive Date: 20250626
  Receipt Date: 20250626
  Transmission Date: 20250717
  Serious: Yes (Life-Threatening, Other)
  Sender: AUROBINDO
  Company Number: FR-AFSSAPS-NT2025000489

PATIENT
  Age: 44 Year
  Sex: Female
  Weight: 63 kg

DRUGS (2)
  1. IBUPROFEN [Suspect]
     Active Substance: IBUPROFEN
     Indication: Headache
     Route: 048
     Dates: start: 20250107
  2. DIENOGEST [Suspect]
     Active Substance: DIENOGEST
     Indication: Contraception
     Dosage: 1 DOSAGE FORM, ONCE A DAY
     Route: 048
     Dates: end: 20250107

REACTIONS (4)
  - Ischaemic stroke [Recovering/Resolving]
  - Hemiparesis [Recovering/Resolving]
  - Dysarthria [Recovering/Resolving]
  - Cognitive disorder [Recovering/Resolving]

NARRATIVE: CASE EVENT DATE: 20250101
